FAERS Safety Report 5953720-1 (Version None)
Quarter: 2008Q4

REPORT INFORMATION
  Report Type: 
  Country: None (occurrence: None)
  Receive Date: 20081114
  Receipt Date: 20081103
  Transmission Date: 20090506
  Serious: Yes (Hospitalization)
  Sender: FDA-Public Use
  Company Number: FI-ROCHE-595352

PATIENT
  Sex: Male

DRUGS (1)
  1. XELODA [Suspect]
     Route: 048

REACTIONS (5)
  - BLOOD GLUCOSE INCREASED [None]
  - FUNGAL INFECTION [None]
  - HAEMOGLOBIN DECREASED [None]
  - PNEUMONIA [None]
  - PYELONEPHRITIS [None]
